FAERS Safety Report 7686334-6 (Version None)
Quarter: 2011Q3

REPORT INFORMATION
  Report Type: 
  Country: None (occurrence: None)
  Receive Date: 20110816
  Receipt Date: 20110523
  Transmission Date: 20111222
  Serious: Yes (Hospitalization, Other)
  Sender: FDA-Public Use
  Company Number: US-GLAXOSMITHKLINE-A0928566A

PATIENT
  Age: 75 Year
  Sex: Male

DRUGS (2)
  1. PROMACTA [Suspect]
     Indication: IDIOPATHIC THROMBOCYTOPENIC PURPURA
     Dosage: 50MG PER DAY
     Route: 048
     Dates: start: 20100622
  2. UNKNOWN [Concomitant]

REACTIONS (9)
  - FATIGUE [None]
  - CONTUSION [None]
  - VOMITING [None]
  - EAR DISCOMFORT [None]
  - HEART RATE INCREASED [None]
  - ILL-DEFINED DISORDER [None]
  - ASTHENIA [None]
  - CHRONIC OBSTRUCTIVE PULMONARY DISEASE [None]
  - NAUSEA [None]
